FAERS Safety Report 4617190-8 (Version None)
Quarter: 2005Q1

REPORT INFORMATION
  Report Type: 
  Country: None (occurrence: None)
  Receive Date: 20050323
  Receipt Date: 20041216
  Transmission Date: 20050727
  Serious: Yes (Other)
  Sender: FDA-Public Use
  Company Number: 001#1#2004-00250

PATIENT
  Sex: Male

DRUGS (1)
  1. ATMADISC [Suspect]
     Route: 055

REACTIONS (3)
  - CHILLS [None]
  - PYREXIA [None]
  - TREMOR [None]
